FAERS Safety Report 7520110-X (Version None)
Quarter: 2011Q2

REPORT INFORMATION
  Report Type: 
  Country: None (occurrence: None)
  Receive Date: 20110602
  Receipt Date: 20110530
  Transmission Date: 20111010
  Serious: Yes (Hospitalization, Other)
  Sender: FDA-Public Use
  Company Number: FR-PFIZER INC-2011064058

PATIENT
  Age: 84 Year
  Sex: Female

DRUGS (14)
  1. PREVISCAN [Interacting]
     Dosage: 10 MG, 1X/DAY
     Route: 048
  2. BISOPROLOL FUMARATE [Concomitant]
     Dosage: 10 MG, 1X/DAY
     Route: 048
  3. FUROSEMIDE [Concomitant]
     Dosage: 40 MG, 1X/DAY
     Route: 048
     Dates: end: 20110202
  4. METFORMIN [Concomitant]
     Dosage: 500 MG, 3X/DAY
     Route: 048
  5. PERINDOPRIL ERBUMINE [Concomitant]
     Dosage: 10 MG, 1X/DAY
     Route: 048
  6. ZOLPIDEM [Concomitant]
     Dosage: 10 MG, 1X/DAY
     Route: 048
  7. SOLU-MEDROL [Suspect]
     Indication: SCIATICA
     Dosage: UNK
     Route: 042
     Dates: start: 20110111, end: 20110117
  8. ATORVASTATIN [Concomitant]
     Dosage: 10 MG, 1X/DAY
     Route: 048
     Dates: end: 20110202
  9. REPAGLINIDE [Concomitant]
     Dosage: 1 DF, 3X/DAY
     Route: 048
     Dates: end: 20110127
  10. LOVENOX [Interacting]
     Dosage: UNK
     Route: 058
     Dates: start: 20110111, end: 20110117
  11. LEVOTHYROXINE SODIUM [Concomitant]
     Dosage: 100 UG, 1X/DAY
     Route: 048
  12. AMIODARONE [Concomitant]
     Dosage: 200 MG, 2X/DAY
     Route: 048
  13. RABEPRAZOLE SODIUM [Concomitant]
     Dosage: 20 MG, 1X/DAY
     Route: 048
  14. SITAGLIPTIN [Concomitant]
     Dosage: 100 MG, 1X/DAY
     Route: 048
     Dates: end: 20110127

REACTIONS (4)
  - ANAEMIA [None]
  - ABDOMINAL WALL HAEMATOMA [None]
  - DRUG INTERACTION [None]
  - INTERNATIONAL NORMALISED RATIO INCREASED [None]
